FAERS Safety Report 17353093 (Version 1)
Quarter: 2020Q1

REPORT INFORMATION
  Report Type: Spontaneous
  Country: CA (occurrence: CA)
  Receive Date: 20200131
  Receipt Date: 20200131
  Transmission Date: 20200409
  Serious: Yes (Other)
  Sender: FDA-Public Use
  Company Number: CA-TEVA-2020-CA-1176823

PATIENT
  Age: 54 Year
  Sex: Male

DRUGS (7)
  1. CALCIUM [Concomitant]
     Active Substance: CALCIUM
  2. CORTIFOAM [Concomitant]
     Active Substance: HYDROCORTISONE ACETATE
  3. VENLAFAXINE HYDROCHLORIDE. [Suspect]
     Active Substance: VENLAFAXINE HYDROCHLORIDE
     Indication: PRODUCT USED FOR UNKNOWN INDICATION
     Route: 065
  4. DEXILANT [Concomitant]
     Active Substance: DEXLANSOPRAZOLE
  5. HYDROXYZINE [Concomitant]
     Active Substance: HYDROXYZINE HYDROCHLORIDE
  6. QUETIAPINE. [Concomitant]
     Active Substance: QUETIAPINE
  7. MESALAZINE [Concomitant]
     Active Substance: MESALAMINE

REACTIONS (5)
  - Cardiac disorder [Unknown]
  - Drug-induced liver injury [Unknown]
  - Crohn^s disease [Unknown]
  - Rectal ulcer [Unknown]
  - Benign lung neoplasm [Unknown]
